FAERS Safety Report 21266490 (Version 2)
Quarter: 2022Q3

REPORT INFORMATION
  Report Type: Report from Study
  Country: US (occurrence: US)
  Receive Date: 20220829
  Receipt Date: 20220923
  Transmission Date: 20221027
  Serious: Yes (Hospitalization, Other)
  Sender: FDA-Public Use
  Company Number: US-TAKEDA-2022TUS058859

PATIENT
  Sex: Female

DRUGS (4)
  1. TEDUGLUTIDE [Suspect]
     Active Substance: TEDUGLUTIDE
     Indication: Short-bowel syndrome
     Dosage: 0.234 MILLILITER, QD
     Route: 050
     Dates: start: 20220518
  2. TEDUGLUTIDE [Suspect]
     Active Substance: TEDUGLUTIDE
     Indication: Short-bowel syndrome
     Dosage: 0.234 MILLILITER, QD
     Route: 050
     Dates: start: 20220518
  3. TEDUGLUTIDE [Suspect]
     Active Substance: TEDUGLUTIDE
     Indication: Short-bowel syndrome
     Dosage: 0.234 MILLILITER, QD
     Route: 050
     Dates: start: 20220518
  4. TEDUGLUTIDE [Suspect]
     Active Substance: TEDUGLUTIDE
     Indication: Short-bowel syndrome
     Dosage: 0.234 MILLILITER, QD
     Route: 050
     Dates: start: 20220518

REACTIONS (3)
  - Blood pressure increased [Unknown]
  - Cholecystectomy [Unknown]
  - Abdominal cavity drainage [Not Recovered/Not Resolved]
